FAERS Safety Report 10075773 (Version 4)
Quarter: 2014Q4

REPORT INFORMATION
  Report Type: Spontaneous
  Country: US (occurrence: US)
  Receive Date: 20140414
  Receipt Date: 20141031
  Transmission Date: 20150528
  Serious: Yes (Other)
  Sender: FDA-Public Use
  Company Number: US-009507513-1404USA002736

PATIENT
  Sex: Male
  Weight: 77.98 kg

DRUGS (2)
  1. PROPECIA [Suspect]
     Active Substance: FINASTERIDE
     Indication: ANDROGENETIC ALOPECIA
     Dosage: 1 MG, QD
     Route: 048
     Dates: start: 20030110, end: 20120328
  2. FINASTERIDE. [Suspect]
     Active Substance: FINASTERIDE
     Indication: ANDROGENETIC ALOPECIA
     Dosage: 1 MG, QD
     Route: 048
     Dates: end: 20110420

REACTIONS (17)
  - Hypogonadism [Unknown]
  - Weight decreased [Unknown]
  - Orgasm abnormal [Unknown]
  - Loss of libido [Unknown]
  - Myalgia [Unknown]
  - Anxiety [Not Recovered/Not Resolved]
  - Sexual dysfunction [Not Recovered/Not Resolved]
  - Hypercholesterolaemia [Unknown]
  - Erectile dysfunction [Not Recovered/Not Resolved]
  - Tonsillectomy [Unknown]
  - Stress [Unknown]
  - Arthralgia [Unknown]
  - Suicidal ideation [Recovered/Resolved]
  - Glycosylated haemoglobin increased [Unknown]
  - Depressed mood [Recovering/Resolving]
  - Depression [Not Recovered/Not Resolved]
  - Blood glucose increased [Unknown]

NARRATIVE: CASE EVENT DATE: 2004
